FAERS Safety Report 26187543 (Version 1)
Quarter: 2025Q4

REPORT INFORMATION
  Report Type: Report from Study
  Country: PH (occurrence: PH)
  Receive Date: 20251222
  Receipt Date: 20251222
  Transmission Date: 20260117
  Serious: Yes (Death)
  Sender: OTSUKA
  Company Number: PH-MMM-Otsuka-0XCIF6PB

PATIENT

DRUGS (1)
  1. TOLVAPTAN [Suspect]
     Active Substance: TOLVAPTAN
     Indication: Product used for unknown indication
     Dosage: 0.5 DF, QOD (15 MG HALF TABLET EVERY OTHER DAY)
     Route: 061
     Dates: end: 20250712

REACTIONS (6)
  - Diabetic complication [Fatal]
  - Pulmonary oedema [Fatal]
  - Cardiac disorder [Fatal]
  - Wrong technique in product usage process [Unknown]
  - Underdose [Unknown]
  - Inappropriate schedule of product administration [Unknown]
